FAERS Safety Report 21541897 (Version 1)
Quarter: 2022Q4

REPORT INFORMATION
  Report Type: Spontaneous
  Country: US (occurrence: US)
  Receive Date: 20221102
  Receipt Date: 20221102
  Transmission Date: 20230113
  Serious: No
  Sender: FDA-Public Use
  Company Number: US-ELI_LILLY_AND_COMPANY-US202211000790

PATIENT
  Sex: Female

DRUGS (1)
  1. HUMULIN N [Suspect]
     Active Substance: INSULIN HUMAN
     Indication: Product used for unknown indication
     Dosage: UNK UNK, UNKNOWN
     Route: 065
     Dates: start: 202206

REACTIONS (7)
  - Injection site discolouration [Not Recovered/Not Resolved]
  - Injection site bruising [Unknown]
  - Glycosylated haemoglobin increased [Unknown]
  - Injection site pain [Unknown]
  - Injection site irritation [Unknown]
  - Injection site erythema [Unknown]
  - Injection site pruritus [Unknown]
